FAERS Safety Report 8010787-7 (Version None)
Quarter: 2011Q4

REPORT INFORMATION
  Report Type: 
  Country: None (occurrence: None)
  Receive Date: 20111228
  Receipt Date: 20111220
  Transmission Date: 20120403
  Serious: Yes (Hospitalization)
  Sender: FDA-Public Use
  Company Number: US-JNJFOC-20111209518

PATIENT
  Sex: Female
  Weight: 87.5 kg

DRUGS (5)
  1. ACETAMINOPHEN [Concomitant]
  2. REMICADE [Suspect]
     Indication: INFLAMMATORY BOWEL DISEASE
     Route: 042
     Dates: start: 20110223
  3. ANTIBIOTICS [Suspect]
     Indication: INFLAMMATORY BOWEL DISEASE
  4. FERREX 150 [Concomitant]
  5. ANTIBIOTICS [Concomitant]

REACTIONS (2)
  - VULVAL ABSCESS [None]
  - ANAL ABSCESS [None]
